FAERS Safety Report 9679115 (Version 2)
Quarter: 2014Q1

REPORT INFORMATION
  Report Type: Spontaneous
  Country: JP (occurrence: None)
  Receive Date: 20131107
  Receipt Date: 20140219
  Transmission Date: 20141002
  Serious: Yes (Death, Life-Threatening, Hospitalization)
  Sender: FDA-Public Use
  Company Number: 2013-002866

PATIENT
  Age: 72 Year
  Sex: Female

DRUGS (4)
  1. BENET [Suspect]
     Indication: OSTEOPOROSIS
     Route: 048
     Dates: end: 20130705
  2. NOVOLIN R [Concomitant]
  3. NORADRENALINE [Concomitant]
  4. HEPARIN (HEPARIN) [Concomitant]

REACTIONS (4)
  - Sepsis [None]
  - Hyperphosphataemia [None]
  - Hypocalcaemia [None]
  - Malnutrition [None]
